FAERS Safety Report 9845187 (Version 1)
Quarter: 2014Q1

REPORT INFORMATION
  Report Type: Spontaneous
  Country: GB (occurrence: None)
  Receive Date: 20140122
  Receipt Date: 20140122
  Transmission Date: 20141002
  Serious: Yes (Hospitalization)
  Sender: FDA-Public Use
  Company Number: 2013RN000028

PATIENT
  Age: 80 Year
  Sex: Male

DRUGS (9)
  1. ACYCLOVIR [Suspect]
     Indication: CHRONIC LYMPHOCYTIC LEUKAEMIA
     Route: 048
     Dates: start: 20130522, end: 20130625
  2. PREDNISOLONE [Suspect]
     Indication: CHRONIC LYMPHOCYTIC LEUKAEMIA
     Dates: start: 20130522
  3. ALLOPURINOL [Suspect]
     Indication: CHRONIC LYMPHOCYTIC LEUKAEMIA
     Route: 048
     Dates: start: 20130522, end: 20130625
  4. OFATUMUMAB [Suspect]
     Indication: CHRONIC LYMPHOCYTIC LEUKAEMIA
     Route: 042
     Dates: start: 20130522
  5. CHLORAMBUCIL [Suspect]
     Indication: CHRONIC LYMPHOCYTIC LEUKAEMIA
     Route: 042
     Dates: start: 20130522
  6. PARACETAMOL [Concomitant]
  7. CHLORPHENIRAMINE [Concomitant]
  8. METOCLOPRAMIDE [Concomitant]
  9. GRANULOCYTE COLONY-STIMULATING FACTOR NOS [Concomitant]

REACTIONS (5)
  - Rash [None]
  - Escherichia sepsis [None]
  - Haemoglobin decreased [None]
  - Blood sodium decreased [None]
  - Protein total decreased [None]
